FAERS Safety Report 8846155 (Version 1)
Quarter: 2012Q4

REPORT INFORMATION
  Report Type: 
  Country: FR (occurrence: FR)
  Receive Date: 20121017
  Receipt Date: 20121017
  Transmission Date: 20130627
  Serious: Yes (Other)
  Sender: FDA-Public Use
  Company Number: PHHY2012FR091091

PATIENT
  Age: 60 Year
  Sex: Male

DRUGS (9)
  1. ONBREZ [Suspect]
     Indication: CHRONIC OBSTRUCTIVE PULMONARY DISEASE
     Dosage: 1 DF, UNK
  2. ONBREZ [Suspect]
     Dosage: 2 DF, UNK
  3. KARDEGIC [Concomitant]
  4. SIMVASTATIN [Concomitant]
  5. CARDENSIEL [Concomitant]
  6. RAMIPRIL [Concomitant]
     Dosage: 7.5 mg, daily
  7. NATISPRAY [Concomitant]
  8. SPIRIVA [Concomitant]
  9. VENTOLINE [Concomitant]

REACTIONS (6)
  - Angioedema [Unknown]
  - Lip oedema [Unknown]
  - Face oedema [Unknown]
  - Erythema [Unknown]
  - Accidental overdose [Unknown]
  - Lung neoplasm malignant [Unknown]
